FAERS Safety Report 25978954 (Version 3)
Quarter: 2025Q4

REPORT INFORMATION
  Report Type: Spontaneous
  Country: JP (occurrence: JP)
  Receive Date: 20251030
  Receipt Date: 20251124
  Transmission Date: 20260118
  Serious: Yes (Life-Threatening)
  Sender: ALK-ABELLO
  Company Number: JP-ALK-ABELLO A/S-2025AA003696

PATIENT

DRUGS (5)
  1. MITICURE [Suspect]
     Active Substance: DERMATOPHAGOIDES FARINAE\DERMATOPHAGOIDES PTERONYSSINUS
     Indication: Mite allergy
     Dosage: 3300 JAU, QD
     Route: 060
     Dates: start: 20250922, end: 20250928
  2. MITICURE [Suspect]
     Active Substance: DERMATOPHAGOIDES FARINAE\DERMATOPHAGOIDES PTERONYSSINUS
     Dosage: 10000 JAU, QD
     Route: 060
     Dates: start: 20250929, end: 20251002
  3. CRYPTOMERIA JAPONICA POLLEN [Suspect]
     Active Substance: CRYPTOMERIA JAPONICA POLLEN
     Indication: Seasonal allergy
     Dosage: 2000 JAU, QD
     Route: 060
     Dates: start: 20250922, end: 20250928
  4. CRYPTOMERIA JAPONICA POLLEN [Suspect]
     Active Substance: CRYPTOMERIA JAPONICA POLLEN
     Dosage: 5000 JAU, QD
     Route: 060
     Dates: start: 20250929, end: 20251002
  5. ISOTRETINOIN [Concomitant]
     Active Substance: ISOTRETINOIN
     Route: 048

REACTIONS (1)
  - Dyspnoea [Recovered/Resolved]

NARRATIVE: CASE EVENT DATE: 20251001
